FAERS Safety Report 5920987-5 (Version None)
Quarter: 2008Q4

REPORT INFORMATION
  Report Type: 
  Country: None (occurrence: None)
  Receive Date: 20081016
  Receipt Date: 20081009
  Transmission Date: 20090506
  Serious: Yes (Other)
  Sender: FDA-Public Use
  Company Number: US-PFIZER INC-2008085042

PATIENT
  Age: 55 Year
  Sex: Male
  Weight: 73 kg

DRUGS (5)
  1. MARAVIROC [Suspect]
     Route: 048
     Dates: start: 20080916
  2. DARUNAVIR [Suspect]
     Route: 048
     Dates: start: 20080916
  3. ETRAVIRINE [Suspect]
     Route: 048
     Dates: start: 20080916
  4. RALTEGRAVIR [Suspect]
     Route: 048
     Dates: start: 20080916
  5. NORVIR [Suspect]
     Route: 048
     Dates: start: 20080916

REACTIONS (1)
  - EPISTAXIS [None]
